FAERS Safety Report 11659575 (Version 1)
Quarter: 2015Q4

REPORT INFORMATION
  Report Type: Spontaneous
  Country: US (occurrence: None)
  Receive Date: 20151023
  Receipt Date: 20151023
  Transmission Date: 20160304
  Serious: Yes (Other)
  Sender: FDA-Public Use
  Company Number: None

PATIENT
  Age: 45 Year
  Sex: Female
  Weight: 55.34 kg

DRUGS (16)
  1. ZANTAC [Concomitant]
     Active Substance: RANITIDINE HYDROCHLORIDE
  2. SKELAXIN [Concomitant]
     Active Substance: METAXALONE
  3. NEURONTIN [Concomitant]
     Active Substance: GABAPENTIN
  4. HYDROCODONE [Concomitant]
     Active Substance: HYDROCODONE
  5. CITRACAL [Concomitant]
     Active Substance: CALCIUM CITRATE
  6. WELLBUTRIN [Concomitant]
     Active Substance: BUPROPION HYDROCHLORIDE
  7. LAMICTAL [Concomitant]
     Active Substance: LAMOTRIGINE
  8. INDERAL LA [Concomitant]
     Active Substance: PROPRANOLOL HYDROCHLORIDE
  9. MERINA IUD [Concomitant]
  10. VITAMIN B12 [Concomitant]
     Active Substance: CYANOCOBALAMIN
  11. XOLAIR [Suspect]
     Active Substance: OMALIZUMAB
     Indication: ASTHMA
     Route: 042
     Dates: start: 20151019, end: 20151019
  12. VITAMIN D [Concomitant]
     Active Substance: CHOLECALCIFEROL
  13. WOMEN TO WOMEN HORMONE BALANCE (HERBAL) [Suspect]
     Active Substance: HERBALS
  14. ATARAX [Concomitant]
     Active Substance: HYDROXYZINE\HYDROXYZINE HYDROCHLORIDE
  15. BRINTELLIX [Concomitant]
     Active Substance: VORTIOXETINE HYDROBROMIDE
  16. OMEGA 3 [Concomitant]
     Active Substance: OMEGA-3 FATTY ACIDS

REACTIONS (9)
  - Dizziness [None]
  - Headache [None]
  - Confusional state [None]
  - Heart rate increased [None]
  - Nausea [None]
  - Anxiety [None]
  - Dyspnoea [None]
  - Vomiting [None]
  - Hypertension [None]

NARRATIVE: CASE EVENT DATE: 20151019
